FAERS Safety Report 6370714-5 (Version None)
Quarter: 2009Q3

REPORT INFORMATION
  Report Type: 
  Country: None (occurrence: None)
  Receive Date: 20090923
  Receipt Date: 20070706
  Transmission Date: 20100115
  Serious: Yes (Other)
  Sender: FDA-Public Use
  Company Number: US-ASTRAZENECA-2006UW25939

PATIENT
  Age: 41 Year
  Sex: Male
  Weight: 78.9 kg

DRUGS (18)
  1. SEROQUEL [Suspect]
     Indication: MOOD SWINGS
     Dosage: 100 MG TO 800 MG
     Route: 048
     Dates: start: 20000710
  2. SEROQUEL [Suspect]
     Route: 048
     Dates: start: 20010101
  3. ZYPREXA [Concomitant]
     Route: 048
     Dates: start: 20010101
  4. LIBRIUM [Concomitant]
     Route: 048
     Dates: end: 20000710
  5. MELLARIL [Concomitant]
     Dosage: 100 MG QAM AND 200 MG QHS
     Route: 048
     Dates: end: 20000710
  6. PROCARDIA [Concomitant]
     Indication: BLOOD PRESSURE
     Route: 048
     Dates: start: 20000710
  7. LITHIUM CARBONATE [Concomitant]
     Dosage: 300 MG QAM AND 600 MG QHS
     Route: 048
     Dates: start: 20000710, end: 20020812
  8. TRAZODONE [Concomitant]
     Dosage: 100 MG TO 400 MG
     Route: 048
     Dates: start: 20000710
  9. BUSPAR [Concomitant]
     Indication: ANXIETY
     Route: 048
     Dates: start: 20000710
  10. NEURONTIN [Concomitant]
     Route: 048
     Dates: start: 20010101
  11. ATENOLOL [Concomitant]
     Indication: HYPERTENSION
     Dates: start: 20010101
  12. GABITRIL [Concomitant]
     Indication: AFFECTIVE DISORDER
     Route: 048
     Dates: start: 20020812, end: 20030604
  13. GABITRIL [Concomitant]
     Indication: ANXIETY
     Route: 048
     Dates: start: 20020812, end: 20030604
  14. VISTARIL [Concomitant]
     Route: 048
     Dates: start: 20020812, end: 20030604
  15. AMANTADINE HCL [Concomitant]
     Indication: WEIGHT DECREASED
     Route: 048
     Dates: start: 20020812, end: 20030205
  16. CELEXA [Concomitant]
     Route: 048
     Dates: start: 20030604
  17. METFORMIN HCL [Concomitant]
     Dates: start: 20040129
  18. ASPIRIN [Concomitant]
     Dosage: AT NIGHT

REACTIONS (5)
  - DIABETES MELLITUS [None]
  - DIABETES MELLITUS INADEQUATE CONTROL [None]
  - GLUCOSE TOLERANCE IMPAIRED [None]
  - PANCREATITIS [None]
  - TYPE 2 DIABETES MELLITUS [None]
